FAERS Safety Report 7909350 (Version 6)
Quarter: 2014Q2

REPORT INFORMATION
  Report Type: Spontaneous
  Country: US (occurrence: US)
  Receive Date: 20110421
  Receipt Date: 20140515
  Transmission Date: 20141212
  Serious: Yes (Other)
  Sender: FDA-Public Use
  Company Number: US-ASTRAZENECA-2010SE31481

PATIENT
  Age: 23883 Day
  Sex: Male
  Weight: 72.6 kg

DRUGS (12)
  1. TOPROL XL [Suspect]
     Route: 048
  2. TOPROL XL [Suspect]
     Route: 048
  3. TOPROL XL [Suspect]
     Route: 048
  4. CRESTOR [Suspect]
     Indication: BLOOD CHOLESTEROL INCREASED
     Route: 048
     Dates: start: 2009, end: 20130821
  5. CRESTOR [Suspect]
     Indication: BLOOD CHOLESTEROL INCREASED
     Route: 048
     Dates: start: 20130822, end: 20130823
  6. CRESTOR [Suspect]
     Indication: BLOOD CHOLESTEROL INCREASED
     Route: 048
     Dates: start: 20130824, end: 20130825
  7. UNSPECIFIED DRUG FOR BREATHING [Suspect]
     Indication: RESPIRATORY DISORDER
     Dosage: AS NEEDED
     Route: 065
     Dates: start: 201308
  8. CASODEX [Concomitant]
     Indication: PROSTATE CANCER
     Route: 048
     Dates: start: 20111005
  9. LUPRON [Concomitant]
     Indication: PROSTATE CANCER
     Dosage: TWO TO THREE WEEKS
     Route: 030
     Dates: start: 20111115
  10. ASPIRIN [Concomitant]
  11. LEVAQUIN [Concomitant]
  12. ALBUTEROL [Concomitant]
     Indication: RESPIRATORY DISORDER

REACTIONS (8)
  - Cerebrovascular accident [Unknown]
  - Prostate cancer [Unknown]
  - Bone lesion [Unknown]
  - Prostatic specific antigen abnormal [Unknown]
  - Laryngitis [Unknown]
  - Arthritis [Unknown]
  - Pulmonary congestion [Not Recovered/Not Resolved]
  - Drug dose omission [Unknown]
